FAERS Safety Report 7538191 (Version 3)
Quarter: 2014Q2

REPORT INFORMATION
  Report Type: Spontaneous
  Country: JP (occurrence: JP)
  Receive Date: 20100812
  Receipt Date: 20140512
  Transmission Date: 20141212
  Serious: Yes (Other)
  Sender: FDA-Public Use
  Company Number: JP-JNJFOC-20100801690

PATIENT
  Age: 37 Year
  Sex: Male

DRUGS (1)
  1. RISPERDAL [Suspect]
     Indication: SCHIZOPHRENIA
     Route: 048

REACTIONS (8)
  - Erectile dysfunction [Unknown]
  - Ejaculation disorder [Unknown]
  - Abnormal behaviour [Unknown]
  - Speech disorder [Unknown]
  - Insomnia [Unknown]
  - Libido decreased [Unknown]
  - Weight increased [Unknown]
  - Thirst [Unknown]
